FAERS Safety Report 16575150 (Version 1)
Quarter: 2019Q3

REPORT INFORMATION
  Report Type: Report from Study
  Country: CR (occurrence: CR)
  Receive Date: 20190715
  Receipt Date: 20190715
  Transmission Date: 20191004
  Serious: Yes (Other)
  Sender: FDA-Public Use
  Company Number: PHHY2019CR161767

PATIENT
  Age: 79 Year
  Sex: Male

DRUGS (2)
  1. DIOVAN [Suspect]
     Active Substance: VALSARTAN
     Indication: PRODUCT USED FOR UNKNOWN INDICATION
     Dosage: 2 DF, QD (ONE IN THE MORNING AND THE OTHER AT NIGHT)
     Route: 065
     Dates: start: 201712
  2. CO-DIOVAN [Suspect]
     Active Substance: HYDROCHLOROTHIAZIDE\VALSARTAN
     Indication: PRODUCT USED FOR UNKNOWN INDICATION
     Dosage: (HYDROCHLOROTHIAZIDE 25 MG AND VALSARTAN 320MG)
     Route: 065

REACTIONS (3)
  - Renal disorder [Unknown]
  - Incorrect dose administered [Unknown]
  - Diabetes mellitus [Unknown]
